FAERS Safety Report 6344332-9 (Version None)
Quarter: 2009Q3

REPORT INFORMATION
  Report Type: 
  Country: None (occurrence: None)
  Receive Date: 20090903
  Receipt Date: 20090819
  Transmission Date: 20100115
  Serious: Yes (Hospitalization)
  Sender: FDA-Public Use
  Company Number: 2009BI026176

PATIENT
  Age: 69 Year
  Sex: Male

DRUGS (2)
  1. ZEVALIN [Suspect]
     Indication: MANTLE CELL LYMPHOMA RECURRENT
     Dosage: ; 1X;
     Dates: start: 20090811, end: 20090811
  2. RITUXAN [Concomitant]

REACTIONS (3)
  - B-CELL LYMPHOMA STAGE III [None]
  - GENERAL PHYSICAL HEALTH DETERIORATION [None]
  - MANTLE CELL LYMPHOMA RECURRENT [None]
